FAERS Safety Report 25820353 (Version 1)
Quarter: 2025Q3

REPORT INFORMATION
  Report Type: Other
  Country: BR (occurrence: BR)
  Receive Date: 20250919
  Receipt Date: 20250919
  Transmission Date: 20251020
  Serious: Yes (Hospitalization, Other)
  Sender: ANI
  Company Number: BR-ANIPHARMA-030603

PATIENT
  Age: 2 Year
  Sex: Female

DRUGS (2)
  1. VANCOMYCIN [Suspect]
     Active Substance: VANCOMYCIN
     Indication: Evidence based treatment
  2. MEROPENEM [Concomitant]
     Active Substance: MEROPENEM
     Indication: Evidence based treatment

REACTIONS (2)
  - Necrotising fasciitis [Recovering/Resolving]
  - Stenotrophomonas infection [Recovering/Resolving]
